FAERS Safety Report 13382582 (Version 6)
Quarter: 2018Q1

REPORT INFORMATION
  Report Type: Report from Study
  Country: US (occurrence: US)
  Receive Date: 20170329
  Receipt Date: 20180123
  Transmission Date: 20180508
  Serious: No
  Sender: FDA-Public Use
  Company Number: PHHY2017US043724

PATIENT
  Age: 28 Year
  Sex: Female

DRUGS (2)
  1. GILENYA [Suspect]
     Active Substance: FINGOLIMOD HYDROCHLORIDE
     Indication: MULTIPLE SCLEROSIS
     Dosage: UNK, QD
     Route: 048
  2. ZOLPIDEM [Concomitant]
     Active Substance: ZOLPIDEM\ZOLPIDEM TARTRATE
     Indication: INSOMNIA
     Dosage: UNK
     Route: 065
     Dates: start: 20170110

REACTIONS (27)
  - Fatigue [Unknown]
  - Amenorrhoea [Recovered/Resolved]
  - Dysaesthesia [Unknown]
  - Lymphopenia [Unknown]
  - Vertebral foraminal stenosis [Unknown]
  - Dyspepsia [Unknown]
  - Urinary tract infection [Recovered/Resolved]
  - Haemangioma of skin [Unknown]
  - Lhermitte^s sign [Recovered/Resolved]
  - Blood potassium decreased [Recovered/Resolved]
  - Vertigo [Unknown]
  - Neoplasm [Unknown]
  - Ear pain [Recovered/Resolved]
  - Muscle contractions involuntary [Recovered/Resolved]
  - Urinary incontinence [Unknown]
  - Dizziness [Recovered/Resolved]
  - Sinusitis [Recovered/Resolved]
  - Melanocytic naevus [Unknown]
  - Eczema [Unknown]
  - Blood glucose increased [Recovered/Resolved]
  - Carbon dioxide abnormal [Recovered/Resolved]
  - Muscle spasticity [Unknown]
  - Dysaesthesia [Recovered/Resolved]
  - Aspartate aminotransferase decreased [Recovered/Resolved]
  - Upper respiratory tract infection [Recovered/Resolved]
  - Acne [Unknown]
  - Anion gap increased [Recovered/Resolved]

NARRATIVE: CASE EVENT DATE: 20161220
